FAERS Safety Report 17017482 (Version 1)
Quarter: 2019Q4

REPORT INFORMATION
  Report Type: Spontaneous
  Country: US (occurrence: US)
  Receive Date: 20191111
  Receipt Date: 20191111
  Transmission Date: 20200122
  Serious: Yes (Hospitalization)
  Sender: FDA-Public Use
  Company Number: US-EPIC PHARMA LLC-2019EPC00320

PATIENT
  Age: 3 Year
  Sex: Male

DRUGS (1)
  1. OXYCODONE HYDROCHLORIDE. [Suspect]
     Active Substance: OXYCODONE HYDROCHLORIDE
     Route: 048

REACTIONS (8)
  - Disseminated intravascular coagulation [Recovered/Resolved with Sequelae]
  - Overdose [Recovered/Resolved]
  - Leukoencephalopathy [Recovered/Resolved with Sequelae]
  - Respiratory acidosis [Recovered/Resolved]
  - Coma [Recovered/Resolved]
  - Metabolic acidosis [Recovered/Resolved]
  - Multi-organ disorder [Recovered/Resolved with Sequelae]
  - Brain oedema [Recovered/Resolved with Sequelae]
